FAERS Safety Report 9315010 (Version 1)
Quarter: 2013Q2

REPORT INFORMATION
  Report Type: Spontaneous
  Country: US (occurrence: US)
  Receive Date: 20130528
  Receipt Date: 20130528
  Transmission Date: 20140414
  Serious: Yes (Other)
  Sender: FDA-Public Use
  Company Number: US-RB-052395-13

PATIENT
  Age: 68 Year
  Sex: Male

DRUGS (2)
  1. SUBOXONE TABLET [Suspect]
     Indication: DRUG DEPENDENCE
     Route: 060
     Dates: start: 2009, end: 2011
  2. SUBOXONE TABLET [Suspect]
     Route: 060
     Dates: start: 20130219

REACTIONS (5)
  - Therapeutic response unexpected [Recovered/Resolved]
  - Colon cancer [Recovered/Resolved]
  - Underdose [Recovered/Resolved]
  - Wrong technique in drug usage process [Not Recovered/Not Resolved]
  - Procedural pain [Recovered/Resolved]
